FAERS Safety Report 6689965-5 (Version None)
Quarter: 2010Q2

REPORT INFORMATION
  Report Type: 
  Country: None (occurrence: None)
  Receive Date: 20100421
  Receipt Date: 20100409
  Transmission Date: 20101027
  Serious: Yes (Hospitalization, Other)
  Sender: FDA-Public Use
  Company Number: US-PFIZER INC-2010030879

PATIENT
  Sex: Female

DRUGS (2)
  1. DETROL LA [Suspect]
  2. TOVIAZ [Suspect]
     Indication: HYPERTONIC BLADDER
     Dosage: UNK
     Dates: start: 20100201

REACTIONS (2)
  - CATHETER PLACEMENT [None]
  - URINARY INCONTINENCE [None]
